FAERS Safety Report 6301293-6 (Version None)
Quarter: 2009Q3

REPORT INFORMATION
  Report Type: 
  Country: None (occurrence: None)
  Receive Date: 20090807
  Receipt Date: 20090729
  Transmission Date: 20100115
  Serious: Yes (Life-Threatening)
  Sender: FDA-Public Use
  Company Number: US-BAYER-200927190GPV

PATIENT

DRUGS (1)
  1. SORAFENIB [Suspect]
     Indication: SARCOMA
     Dosage: START DOSE
     Route: 048

REACTIONS (1)
  - EJECTION FRACTION DECREASED [None]
